FAERS Safety Report 6259394-7 (Version None)
Quarter: 2009Q3

REPORT INFORMATION
  Report Type: 
  Country: None (occurrence: None)
  Receive Date: 20090706
  Receipt Date: 20090626
  Transmission Date: 20100115
  Serious: Yes (Death, Congenital Anomaly)
  Sender: FDA-Public Use
  Company Number: US022806

PATIENT
  Sex: Male
  Weight: 2.7669 kg

DRUGS (8)
  1. PROVIGIL [Suspect]
     Indication: FATIGUE
     Dosage: 200 MG (100 MG, 2 IN 1 D), TRANSPLACENTAL
     Route: 064
     Dates: start: 20060101, end: 20070526
  2. REBIF [Suspect]
     Indication: MULTIPLE SCLEROSIS
     Dosage: THREE TIMES PER WEEK (44 MCG,TRI-WEEKLY), SUBCUTANEOUS
     Route: 058
     Dates: start: 20060426, end: 20070526
  3. NEURONTIN [Suspect]
     Indication: MULTIPLE SCLEROSIS
     Dosage: 1800 MG (600 MG,3 IN 1 D), TRANSPLACENTAL
     Route: 064
     Dates: start: 20060101, end: 20070526
  4. NEURONTIN [Suspect]
     Indication: PAIN
     Dosage: 1800 MG (600 MG,3 IN 1 D), TRANSPLACENTAL
     Route: 064
     Dates: start: 20060101, end: 20070526
  5. DITROPAN [Suspect]
     Indication: INCONTINENCE
     Dosage: 5 MG (5 MG, 1 IN 1 D), TRANSPLACENTAL
     Route: 064
     Dates: start: 20060101, end: 20070526
  6. DITROPAN [Suspect]
     Indication: MULTIPLE SCLEROSIS
     Dosage: 5 MG (5 MG, 1 IN 1 D), TRANSPLACENTAL
     Route: 064
     Dates: start: 20060101, end: 20070526
  7. CRESTOR [Suspect]
     Indication: BLOOD CHOLESTEROL INCREASED
     Dosage: 10 MG (10 MG, 1 IN 1 D), TRANSPLACENTAL
     Route: 064
     Dates: start: 20060101, end: 20070526
  8. GLUCOVANCE [Suspect]
     Indication: DIABETES MELLITUS
     Dosage: 10 MG (5 MG, 2 IN 1 D),TRANSPLACENTAL
     Route: 064
     Dates: start: 20020101, end: 20070526

REACTIONS (17)
  - ANAL ATRESIA [None]
  - CAESAREAN SECTION [None]
  - CONGENITAL HAND MALFORMATION [None]
  - DYSPLASIA [None]
  - FLUID RETENTION [None]
  - HEART DISEASE CONGENITAL [None]
  - KIDNEY MALFORMATION [None]
  - LIMB MALFORMATION [None]
  - MATERNAL DRUGS AFFECTING FOETUS [None]
  - MULTIPLE CONGENITAL ABNORMALITIES [None]
  - PREMATURE BABY [None]
  - PULMONARY HYPOPLASIA [None]
  - SKIN DISCOLOURATION [None]
  - SPINAL DEFORMITY [None]
  - TALIPES [None]
  - TRACHEO-OESOPHAGEAL FISTULA [None]
  - VACTERL SYNDROME [None]
